FAERS Safety Report 15391400 (Version 1)
Quarter: 2018Q3

REPORT INFORMATION
  Report Type: Spontaneous
  Country: US (occurrence: US)
  Receive Date: 20180910
  Receipt Date: 20180910
  Transmission Date: 20181010
  Serious: Yes (Disabling)
  Sender: FDA-Public Use
  Company Number: None

PATIENT
  Age: 55 Year
  Sex: Female
  Weight: 87.75 kg

DRUGS (4)
  1. PANTOPRAZOLE [Concomitant]
     Active Substance: PANTOPRAZOLE
  2. ONE?A?DAY WOMEN^S VITAMIN [Concomitant]
  3. LAMOTRIGINE 100MG TABLETS [Suspect]
     Active Substance: LAMOTRIGINE
     Indication: BIPOLAR II DISORDER
     Dosage: ?          QUANTITY:1 TABLET(S);?
     Route: 048
     Dates: start: 20180807
  4. RANITIDINE. [Concomitant]
     Active Substance: RANITIDINE

REACTIONS (6)
  - Product substitution issue [None]
  - Feeling abnormal [None]
  - Emotional distress [None]
  - Symptom recurrence [None]
  - Product quality issue [None]
  - Fatigue [None]

NARRATIVE: CASE EVENT DATE: 20180910
